FAERS Safety Report 9991272 (Version 1)
Quarter: 2014Q1

REPORT INFORMATION
  Report Type: Report from Study
  Country: US (occurrence: US)
  Receive Date: 20140310
  Receipt Date: 20140310
  Transmission Date: 20141002
  Serious: No
  Sender: FDA-Public Use
  Company Number: US-ABBVIE-13P-163-1131817-00

PATIENT
  Age: 31 Year
  Sex: Female
  Weight: 72.19 kg

DRUGS (5)
  1. HUMIRA [Suspect]
     Indication: CROHN^S DISEASE
     Dates: start: 201301, end: 201305
  2. HUMIRA [Suspect]
     Dates: start: 201306
  3. ASACOL [Concomitant]
     Indication: CROHN^S DISEASE
  4. PROTONIX [Concomitant]
     Indication: CROHN^S DISEASE
  5. BUDESONIDE [Concomitant]
     Indication: CROHN^S DISEASE

REACTIONS (1)
  - Abdominal pain [Recovered/Resolved]
